FAERS Safety Report 7019985-2 (Version None)
Quarter: 2010Q3

REPORT INFORMATION
  Report Type: 
  Country: None (occurrence: None)
  Receive Date: 20100929
  Receipt Date: 20100921
  Transmission Date: 20110219
  Serious: Yes (Other)
  Sender: FDA-Public Use
  Company Number: US-RB-014039-10

PATIENT
  Age: 50 Year
  Sex: Female

DRUGS (1)
  1. MUCINEX DM [Suspect]
     Dosage: THREE DOSES WERE TAKEN IN TOTAL.
     Route: 048
     Dates: start: 20100919

REACTIONS (3)
  - FEELING ABNORMAL [None]
  - HYPERTENSION [None]
  - OFF LABEL USE [None]
